FAERS Safety Report 8550646-4 (Version None)
Quarter: 2012Q3

REPORT INFORMATION
  Report Type: 
  Country: None (occurrence: None)
  Receive Date: 20120730
  Receipt Date: 20110628
  Transmission Date: 20120928
  Serious: No
  Sender: FDA-Public Use
  Company Number: US-ALLERGAN-1108707US

PATIENT
  Age: 51 Year
  Sex: Female

DRUGS (2)
  1. LATISSE [Suspect]
     Indication: GROWTH OF EYELASHES
     Dosage: 1 GTT, UNK
     Dates: start: 20110301
  2. UNSPECIFIED EYE ALLERGY RELIEF DROPS [Concomitant]
     Indication: EYE ALLERGY
     Dosage: UNK

REACTIONS (5)
  - APPLICATION SITE PARAESTHESIA [None]
  - ERYTHEMA OF EYELID [None]
  - WRONG TECHNIQUE IN DRUG USAGE PROCESS [None]
  - TRICHORRHEXIS [None]
  - INCORRECT DOSE ADMINISTERED [None]
